FAERS Safety Report 22018659 (Version 2)
Quarter: 2023Q1

REPORT INFORMATION
  Report Type: Report from Study
  Country: GB (occurrence: GB)
  Receive Date: 20230222
  Receipt Date: 20230327
  Transmission Date: 20230417
  Serious: Yes (Other)
  Sender: FDA-Public Use
  Company Number: GB-CELLTRION INC.-2023GB002743

PATIENT

DRUGS (14)
  1. BEVACIZUMAB [Suspect]
     Active Substance: BEVACIZUMAB
     Indication: Hepatocellular carcinoma
     Dosage: 1200 MG
     Dates: start: 20221110
  2. ATEZOLIZUMAB [Suspect]
     Active Substance: ATEZOLIZUMAB
     Indication: Hepatocellular carcinoma
     Dosage: 1200 MG
     Route: 041
     Dates: start: 20221110
  3. ASPIRIN [Concomitant]
     Active Substance: ASPIRIN
     Dosage: DOSE: 1, QD
     Dates: start: 20050513
  4. BISOPROLOL [Concomitant]
     Active Substance: BISOPROLOL
     Dosage: DOSE: 1, QD
     Dates: start: 20220801
  5. EDOXABAN [Concomitant]
     Active Substance: EDOXABAN
     Dosage: DOSE: 2, QD
     Dates: start: 20220925
  6. INDAPAMIDE [Concomitant]
     Active Substance: INDAPAMIDE
     Dosage: DOSE: 1, QD
     Dates: start: 20060330
  7. LANSOPRAZOLE [Concomitant]
     Active Substance: LANSOPRAZOLE
     Dosage: DOSE: 1, QD
     Dates: start: 20220925
  8. LISINOPRIL [Concomitant]
     Active Substance: LISINOPRIL
     Dosage: DOSE: 1, QD
     Dates: start: 20100202
  9. METFORMIN [Concomitant]
     Active Substance: METFORMIN HYDROCHLORIDE
     Dosage: DOSE: 1, QD
     Dates: start: 20050322
  10. CHLORHEXIDINE HYDROCHLORIDE\NEOMYCIN SULFATE [Concomitant]
     Active Substance: CHLORHEXIDINE HYDROCHLORIDE\NEOMYCIN SULFATE
     Dosage: DOSE: 2, QD
     Dates: start: 20230120, end: 20230306
  11. NIFEDIPINE [Concomitant]
     Active Substance: NIFEDIPINE
     Dosage: DOSE: 1, QD
     Dates: start: 20220925
  12. PIOGLITAZONE [Concomitant]
     Active Substance: PIOGLITAZONE
     Dosage: DOSE: 1, QD
     Dates: start: 20070413
  13. SIMVASTATIN [Concomitant]
     Active Substance: SIMVASTATIN
     Dosage: DOSE: 1, QD
     Dates: start: 20070214
  14. COVID-19 vaccine [Concomitant]

REACTIONS (5)
  - Hypoalbuminaemia [Not Recovered/Not Resolved]
  - Fatigue [Not Recovered/Not Resolved]
  - Hypotension [Not Recovered/Not Resolved]
  - International normalised ratio increased [Not Recovered/Not Resolved]
  - Off label use [Unknown]

NARRATIVE: CASE EVENT DATE: 20221110
